FAERS Safety Report 5275126-3 (Version None)
Quarter: 2007Q1

REPORT INFORMATION
  Report Type: 
  Country: None (occurrence: None)
  Receive Date: 20070326
  Receipt Date: 20070314
  Transmission Date: 20070707
  Serious: Yes (Other)
  Sender: FDA-Public Use
  Company Number: PHBS2007US04691

PATIENT
  Age: 61 Year
  Sex: Male

DRUGS (2)
  1. PAMIDRONATE DISODIUM [Suspect]
     Indication: MULTIPLE MYELOMA
  2. NORVASC [Concomitant]

REACTIONS (6)
  - HYPERBARIC OXYGEN THERAPY [None]
  - MAXILLOFACIAL OPERATION [None]
  - OSTEOLYSIS [None]
  - OSTEONECROSIS [None]
  - SINUS OPERATION [None]
  - TOOTH EXTRACTION [None]
